FAERS Safety Report 7499793-9 (Version None)
Quarter: 2011Q2

REPORT INFORMATION
  Report Type: 
  Country: None (occurrence: None)
  Receive Date: 20110524
  Receipt Date: 20110509
  Transmission Date: 20111010
  Serious: Yes (Other)
  Sender: FDA-Public Use
  Company Number: IT-ROCHE-777510

PATIENT
  Sex: Male

DRUGS (1)
  1. NAPROXEN SODIUM [Suspect]
     Indication: DENTAL OPERATION
     Dosage: SYNFLEX 550 MG COATED TABLET
     Route: 048
     Dates: start: 20110312, end: 20110312

REACTIONS (3)
  - FACE OEDEMA [None]
  - URTICARIA [None]
  - CHEST PAIN [None]
